FAERS Safety Report 8909834 (Version 1)
Quarter: 2012Q4

REPORT INFORMATION
  Report Type: 
  Country: US (occurrence: US)
  Receive Date: 20121115
  Receipt Date: 20121115
  Transmission Date: 20130627
  Serious: No
  Sender: FDA-Public Use
  Company Number: US-JNJFOC-20121003442

PATIENT
  Age: 19 Year
  Sex: Female

DRUGS (3)
  1. INVEGA SUSTENNA [Suspect]
     Indication: BIPOLAR DISORDER
     Route: 030
     Dates: start: 2012
  2. DEPAKOTE ER [Concomitant]
     Route: 048
  3. RISPERDAL [Concomitant]
     Dosage: 1 in am and 2 in pm
     Route: 048

REACTIONS (3)
  - Drooling [Unknown]
  - Vision blurred [Unknown]
  - Fatigue [Unknown]
